FAERS Safety Report 4311914-5 (Version None)
Quarter: 2004Q1

REPORT INFORMATION
  Report Type: 
  Country: None (occurrence: None)
  Receive Date: 20040305
  Receipt Date: 20040220
  Transmission Date: 20041129
  Serious: Yes (Death, Life-Threatening, Hospitalization)
  Sender: FDA-Public Use
  Company Number: PHBS2004DK02647

PATIENT
  Age: 85 Year
  Sex: Male

DRUGS (11)
  1. LAMISIL [Suspect]
     Indication: FUNGAL SKIN INFECTION
     Dosage: 250 MG, QD
     Route: 048
     Dates: start: 20040121
  2. SPIRIX [Interacting]
     Dosage: 25 MG/D
  3. FUROSEMIDE [Concomitant]
     Dosage: 120 MG/D
  4. AMARYL [Concomitant]
     Dosage: 1 MG/D
  5. MAREVAN ^BRITISH DRUG HOUSES^ [Concomitant]
     Dosage: 2.5 MG/D
  6. ZYRTEC [Concomitant]
     Dosage: 10 MG/D
  7. JERN C [Concomitant]
  8. CALCIUM W/VITAMIN D NOS [Concomitant]
  9. LACTULOSE [Concomitant]
  10. KALEORID [Interacting]
  11. ELOCON [Concomitant]

REACTIONS (5)
  - CARDIAC FAILURE [None]
  - HAEMOGLOBIN DECREASED [None]
  - PANCYTOPENIA [None]
  - PLATELET COUNT DECREASED [None]
  - WHITE BLOOD CELL COUNT DECREASED [None]
